FAERS Safety Report 19457570 (Version 2)
Quarter: 2021Q3

REPORT INFORMATION
  Report Type: Spontaneous
  Country: US (occurrence: US)
  Receive Date: 20210624
  Receipt Date: 20210708
  Transmission Date: 20211014
  Serious: Yes (Other)
  Sender: FDA-Public Use
  Company Number: US-PARI RESPIRATORY EQUIPMENT, INC.-2021PAR00035

PATIENT
  Age: 12 Year
  Sex: Male
  Weight: 27.66 kg

DRUGS (20)
  1. KITABIS PAK [Suspect]
     Active Substance: TOBRAMYCIN
     Indication: PNEUMONIA
  2. KITABIS PAK [Suspect]
     Active Substance: TOBRAMYCIN
     Indication: DEPENDENCE ON RESPIRATOR
  3. CLONIDINE HCL [Concomitant]
     Active Substance: CLONIDINE HYDROCHLORIDE
  4. PULMICORT RESPULES [Concomitant]
     Active Substance: BUDESONIDE
  5. NEXIUM [Concomitant]
     Active Substance: ESOMEPRAZOLE MAGNESIUM
  6. KITABIS PAK [Suspect]
     Active Substance: TOBRAMYCIN
     Indication: RESPIRATORY DISORDER
  7. TRAZODONE HYDROCHLORIDE. [Concomitant]
     Active Substance: TRAZODONE HYDROCHLORIDE
  8. KITABIS PAK [Suspect]
     Active Substance: TOBRAMYCIN
     Indication: PSEUDOMONAS INFECTION
     Dosage: 1 AMPULE (300 MG/ 5 ML) WITH A NEBULIZER, 2X/DAY CYCLING 28 DAYS ON AND 28 DAYS OFF
     Dates: start: 201904
  9. KITABIS PAK [Suspect]
     Active Substance: TOBRAMYCIN
     Indication: TRACHEOSTOMY
  10. KEPPRA [Concomitant]
     Active Substance: LEVETIRACETAM
  11. VALIUM [Concomitant]
     Active Substance: DIAZEPAM
  12. NORVASC [Concomitant]
     Active Substance: AMLODIPINE BESYLATE
  13. GABAPENTIN. [Concomitant]
     Active Substance: GABAPENTIN
  14. SINEMET [Concomitant]
     Active Substance: CARBIDOPA\LEVODOPA
  15. ENALAPRIL?HYDROCHLOROTHIAZIDE [Concomitant]
     Active Substance: ENALAPRIL\HYDROCHLOROTHIAZIDE
  16. PHENOBARBITAL. [Concomitant]
     Active Substance: PHENOBARBITAL
  17. CLONIDINE PATCH [Concomitant]
     Active Substance: CLONIDINE
     Dosage: UNK UNK, 1X/WEEK
     Route: 062
  18. ALBUTEROL SULFATE. [Concomitant]
     Active Substance: ALBUTEROL SULFATE
  19. HYDROCORTISONE?ALOE [Concomitant]
  20. ATIVAN [Concomitant]
     Active Substance: LORAZEPAM

REACTIONS (2)
  - Gastroenterostomy [Recovered/Resolved]
  - Off label use [Unknown]

NARRATIVE: CASE EVENT DATE: 201904
